FAERS Safety Report 8500024-9 (Version None)
Quarter: 2012Q3

REPORT INFORMATION
  Report Type: 
  Country: None (occurrence: None)
  Receive Date: 20120703
  Receipt Date: 20120703
  Transmission Date: 20120928
  Serious: Yes (Hospitalization)
  Sender: FDA-Public Use
  Company Number: None

PATIENT
  Sex: Female
  Weight: 85.6845 kg

DRUGS (2)
  1. PEGINTERFERON ALFA-2A [Suspect]
     Indication: HEPATITIS C
     Dosage: X 2U WEEKLY SUBQ
     Route: 058
     Dates: start: 20120526
  2. RIBAVIRIN [Suspect]
     Dosage: 1200 MG DAILY PO
     Route: 048
     Dates: start: 20120526

REACTIONS (1)
  - BRONCHITIS [None]
